FAERS Safety Report 6073878-6 (Version None)
Quarter: 2009Q1

REPORT INFORMATION
  Report Type: 
  Country: None (occurrence: None)
  Receive Date: 20090211
  Receipt Date: 20090130
  Transmission Date: 20090719
  Serious: Yes (Hospitalization)
  Sender: FDA-Public Use
  Company Number: DE-PFIZER INC-2009162577

PATIENT

DRUGS (1)
  1. SUTENT [Suspect]
     Indication: METASTATIC RENAL CELL CARCINOMA
     Dosage: 50 MG, UNK
     Route: 048

REACTIONS (13)
  - ABDOMINAL PAIN [None]
  - AGEUSIA [None]
  - ASTHENIA [None]
  - CARDIOVASCULAR DISORDER [None]
  - DIARRHOEA [None]
  - EPISTAXIS [None]
  - FLATULENCE [None]
  - GENERALISED OEDEMA [None]
  - HYPERTENSION [None]
  - PALMAR-PLANTAR ERYTHRODYSAESTHESIA SYNDROME [None]
  - PULMONARY OEDEMA [None]
  - RESPIRATORY FAILURE [None]
  - STOMATITIS [None]
